FAERS Safety Report 16979825 (Version 1)
Quarter: 2019Q4

REPORT INFORMATION
  Report Type: Spontaneous
  Country: US (occurrence: US)
  Receive Date: 20191031
  Receipt Date: 20191031
  Transmission Date: 20200122
  Serious: No
  Sender: FDA-Public Use
  Company Number: US-INCYTE CORPORATION-2019IN010594

PATIENT

DRUGS (2)
  1. JAKAFI [Suspect]
     Active Substance: RUXOLITINIB
     Indication: ALOPECIA UNIVERSALIS
     Dosage: 25 MILLIGRAM
     Route: 048
     Dates: start: 201903
  2. JAKAFI [Suspect]
     Active Substance: RUXOLITINIB
     Dosage: HALF DOSING
     Route: 065

REACTIONS (3)
  - Bacterial infection [Unknown]
  - Off label use [Unknown]
  - Incorrect dose administered [Unknown]

NARRATIVE: CASE EVENT DATE: 201903
